FAERS Safety Report 7965274-9 (Version None)
Quarter: 2011Q4

REPORT INFORMATION
  Report Type: 
  Country: None (occurrence: None)
  Receive Date: 20111208
  Receipt Date: 20111123
  Transmission Date: 20120403
  Serious: Yes (Hospitalization)
  Sender: FDA-Public Use
  Company Number: US-BAYER-2011-028392

PATIENT
  Age: 20 Year
  Sex: Female
  Weight: 64.853 kg

DRUGS (9)
  1. YASMIN [Suspect]
     Indication: ACNE
     Dosage: UNK
     Dates: start: 20020901, end: 20051001
  2. YAZ [Suspect]
     Indication: PREMENSTRUAL SYNDROME
  3. YASMIN [Suspect]
     Indication: PREMENSTRUAL SYNDROME
  4. YAZ [Suspect]
     Indication: CONTRACEPTION
  5. TRICOR [Concomitant]
  6. YAZ [Suspect]
     Indication: ACNE
     Dosage: UNK
     Dates: start: 20061201, end: 20070101
  7. SINGULAIR [Concomitant]
  8. YASMIN [Suspect]
     Indication: CONTRACEPTION
  9. METFORMIN HCL [Concomitant]

REACTIONS (5)
  - CHOLELITHIASIS [None]
  - ANXIETY [None]
  - INJURY [None]
  - CHOLECYSTITIS CHRONIC [None]
  - PAIN [None]
